FAERS Safety Report 4919686-8 (Version None)
Quarter: 2006Q1

REPORT INFORMATION
  Report Type: 
  Country: None (occurrence: None)
  Receive Date: 20060221
  Receipt Date: 20060207
  Transmission Date: 20060701
  Serious: Yes (Life-Threatening, Hospitalization, Other)
  Sender: FDA-Public Use
  Company Number: A208038

PATIENT
  Age: 27 Year
  Sex: Male
  Weight: 75 kg

DRUGS (4)
  1. ZIPRASIDONE (ZIPRASIDONE) [Suspect]
     Indication: SCHIZOPHRENIA
     Dosage: 2400 MG, ORAL
     Route: 048
     Dates: end: 20020409
  2. WELLBUTRIN [Suspect]
     Indication: ILL-DEFINED DISORDER
     Dosage: ORAL
     Route: 048
  3. KLONOPIN [Suspect]
     Indication: ILL-DEFINED DISORDER
     Dosage: 7.5 MG, ORAL
     Route: 048
  4. ATIVAN [Suspect]
     Indication: ILL-DEFINED DISORDER
     Dosage: 2 MG, ORAL
     Route: 048

REACTIONS (8)
  - ACIDOSIS [None]
  - DRUG SCREEN POSITIVE [None]
  - ELECTROCARDIOGRAM QRS COMPLEX PROLONGED [None]
  - ELECTROCARDIOGRAM QT PROLONGED [None]
  - INTENTIONAL OVERDOSE [None]
  - LETHARGY [None]
  - LOSS OF CONSCIOUSNESS [None]
  - SOMNOLENCE [None]
